FAERS Safety Report 8887914 (Version 1)
Quarter: 2012Q4

REPORT INFORMATION
  Report Type: 
  Country: US (occurrence: US)
  Receive Date: 20121106
  Receipt Date: 20121106
  Transmission Date: 20130627
  Serious: No
  Sender: FDA-Public Use
  Company Number: US-009507513-1211USA000103

PATIENT
  Sex: Male

DRUGS (1)
  1. REBETRON [Suspect]
     Dosage: 1 DF, qw
     Route: 058
     Dates: start: 20121029

REACTIONS (1)
  - Overdose [Unknown]
